FAERS Safety Report 8485526 (Version 4)
Quarter: 2014Q1

REPORT INFORMATION
  Report Type: Report from Study
  Country: DE (occurrence: DE)
  Receive Date: 20120330
  Receipt Date: 20140131
  Transmission Date: 20141002
  Serious: Yes (Death, Hospitalization)
  Sender: FDA-Public Use
  Company Number: DE-ROCHE-1053879

PATIENT
  Age: 38 Year
  Sex: Male
  Weight: 78 kg

DRUGS (15)
  1. BEVACIZUMAB [Suspect]
     Indication: GLIOBLASTOMA MULTIFORME
     Dosage: LAST DOSE PRIOR TO SAE: 8 JULY 2011. INFUSION
     Route: 042
  2. IRINOTECAN [Suspect]
     Indication: GLIOBLASTOMA MULTIFORME
     Dosage: LAST DOSE PRIOR TO THE EVENT : 22 DECEMBER 2010, INFUSION
     Route: 042
  3. TEMOZOLOMIDE [Suspect]
     Indication: GLIOBLASTOMA MULTIFORME
     Route: 048
  4. MCP AL [Concomitant]
     Route: 065
     Dates: start: 20111213
  5. GRANISETRON [Concomitant]
     Dosage: REPORTED: GRANISETRON-HAMEIN. PRN IF NEEDED
     Route: 065
     Dates: start: 20100930, end: 20110304
  6. NOVALGIN [Concomitant]
     Dosage: IF NEEDED
     Route: 065
  7. NOVALGIN [Concomitant]
     Route: 065
  8. DIMENHYDRINAT [Concomitant]
     Dosage: IF NEEDED
     Route: 065
  9. ONDANSETRON [Concomitant]
     Dosage: WHEN NEEDED
     Route: 065
  10. GRANISETRON [Concomitant]
     Route: 065
  11. DEXAMETHASON [Concomitant]
     Route: 065
     Dates: start: 20111213, end: 20120219
  12. PIPERACILLIN/TAZOBACTAM [Concomitant]
     Dosage: TDD: 12/1.5 G
     Route: 065
     Dates: start: 20110721, end: 20110727
  13. CERTOPARIN [Concomitant]
     Dosage: TDD: 3000 IE
     Route: 065
     Dates: start: 20110722, end: 20110726
  14. SULTAMICILLIN [Concomitant]
     Route: 065
     Dates: start: 20110727
  15. PANTOZOL (GERMANY) [Concomitant]
     Route: 065
     Dates: start: 20110119

REACTIONS (1)
  - Gliomatosis cerebri [Fatal]
